FAERS Safety Report 23847521 (Version 1)
Quarter: 2024Q2

REPORT INFORMATION
  Report Type: Spontaneous
  Country: CN (occurrence: CN)
  Receive Date: 20240513
  Receipt Date: 20240513
  Transmission Date: 20240716
  Serious: Yes (Other)
  Sender: FDA-Public Use
  Company Number: CN-ORGANON-O2405CHN000899

PATIENT
  Age: 87 Year
  Sex: Female
  Weight: 42 kg

DRUGS (1)
  1. SINGULAIR [Suspect]
     Active Substance: MONTELUKAST SODIUM
     Indication: Auscultation
     Dosage: 10 MILLIGRAM (MG), QD (EVERY NIGHT)
     Route: 048
     Dates: start: 20240504, end: 20240507

REACTIONS (5)
  - Agitation [Recovering/Resolving]
  - Blood pressure increased [Recovering/Resolving]
  - Restlessness [Recovering/Resolving]
  - Tachypnoea [Recovering/Resolving]
  - Delirium [Recovering/Resolving]

NARRATIVE: CASE EVENT DATE: 20240506
